FAERS Safety Report 6836144-4 (Version None)
Quarter: 2010Q3

REPORT INFORMATION
  Report Type: 
  Country: None (occurrence: None)
  Receive Date: 20100713
  Receipt Date: 20100705
  Transmission Date: 20110219
  Serious: Yes (Death, Other)
  Sender: FDA-Public Use
  Company Number: AU-ROCHE-713925

PATIENT
  Age: 61 Year
  Sex: Male

DRUGS (1)
  1. OSELTAMIVIR [Suspect]
     Indication: H1N1 INFLUENZA
     Dosage: THE PATIENT RECEIVED OSELTAMIVIR FOR 5 DAYS.
     Route: 065

REACTIONS (3)
  - DRUG INEFFECTIVE [None]
  - PATHOGEN RESISTANCE [None]
  - PNEUMONIA [None]
